FAERS Safety Report 7745961-8 (Version None)
Quarter: 2011Q3

REPORT INFORMATION
  Report Type: 
  Country: None (occurrence: None)
  Receive Date: 20110913
  Receipt Date: 20110906
  Transmission Date: 20111222
  Serious: Yes (Other)
  Sender: FDA-Public Use
  Company Number: US-AMGEN-USASP2011038647

PATIENT
  Age: 74 Year
  Sex: Female

DRUGS (11)
  1. CALCIUM CARBONATE [Concomitant]
  2. VITAMIN D [Concomitant]
  3. MULTIVITAMIN                       /00097801/ [Concomitant]
  4. GLUCOSAMINE CHONDROITIN [Concomitant]
  5. PROVERA [Concomitant]
     Dosage: 10 MG, UNK
     Dates: end: 20110701
  6. CALCIUM CARBONATE W/VITAMIN D      /00944201/ [Concomitant]
  7. PROLIA [Suspect]
     Indication: OSTEOPOROSIS POSTMENOPAUSAL
     Dosage: UNK UNK, Q6MO
     Dates: start: 20110706
  8. VITAMIN D [Concomitant]
  9. VITAMIN C                          /00008001/ [Concomitant]
     Dosage: 2000 MG, UNK
  10. LOVAZA [Concomitant]
  11. PREMARIN [Concomitant]
     Dosage: UNK
     Dates: end: 20110701

REACTIONS (3)
  - NECK PAIN [None]
  - TOOTH REPAIR [None]
  - BREAST CANCER STAGE I [None]
